FAERS Safety Report 17148051 (Version 1)
Quarter: 2019Q4

REPORT INFORMATION
  Report Type: Spontaneous
  Country: US (occurrence: US)
  Receive Date: 20191212
  Receipt Date: 20191212
  Transmission Date: 20200122
  Serious: No
  Sender: FDA-Public Use
  Company Number: NVSC2019US003393

PATIENT
  Age: 66 Year
  Sex: Female

DRUGS (1)
  1. ELTROMBOPAG [Suspect]
     Active Substance: ELTROMBOPAG
     Indication: THROMBOCYTOPENIA
     Dosage: 50 MG, QD
     Route: 048

REACTIONS (4)
  - Burning sensation [Recovering/Resolving]
  - Skin toxicity [Recovering/Resolving]
  - Dermatitis acneiform [Recovering/Resolving]
  - Pruritus [Recovering/Resolving]
